FAERS Safety Report 7265582-3 (Version None)
Quarter: 2011Q1

REPORT INFORMATION
  Report Type: 
  Country: None (occurrence: None)
  Receive Date: 20110131
  Receipt Date: 20110121
  Transmission Date: 20110831
  Serious: Yes (Other)
  Sender: FDA-Public Use
  Company Number: JP-EISAI INC-E3810-04417-SPO-JP

PATIENT
  Age: 89 Year
  Sex: Female
  Weight: 43 kg

DRUGS (6)
  1. PARIET (RABEPRAZOLE) [Suspect]
     Indication: GASTRIC ULCER HAEMORRHAGE
     Route: 048
     Dates: start: 20100326, end: 20100827
  2. SEISHOKU [Concomitant]
  3. NATRIX [Concomitant]
  4. LASIX [Concomitant]
  5. OLMETEC [Concomitant]
  6. PROMAC [Concomitant]

REACTIONS (2)
  - NORMOCHROMIC NORMOCYTIC ANAEMIA [None]
  - CEREBRAL INFARCTION [None]
